FAERS Safety Report 23823529 (Version 1)
Quarter: 2024Q2

REPORT INFORMATION
  Report Type: Spontaneous
  Country: US (occurrence: US)
  Receive Date: 20240507
  Receipt Date: 20240507
  Transmission Date: 20240716
  Serious: Yes (Other)
  Sender: FDA-Public Use
  Company Number: US-SA-SAC20240501001433

PATIENT
  Age: 15 Year
  Sex: Female

DRUGS (1)
  1. DUPIXENT [Suspect]
     Active Substance: DUPILUMAB
     Indication: Eosinophilic oesophagitis
     Dosage: 300 MG, QW
     Route: 058

REACTIONS (9)
  - Autism spectrum disorder [Unknown]
  - Bipolar disorder [Unknown]
  - Asthenia [Unknown]
  - Fatigue [Unknown]
  - Thyroid disorder [Unknown]
  - Middle insomnia [Recovering/Resolving]
  - Dry skin [Unknown]
  - Somnolence [Unknown]
  - Pruritus [Unknown]

NARRATIVE: CASE EVENT DATE: 20240201
